FAERS Safety Report 22348741 (Version 8)
Quarter: 2024Q1

REPORT INFORMATION
  Report Type: Report from Study
  Country: US (occurrence: US)
  Receive Date: 20230522
  Receipt Date: 20240228
  Transmission Date: 20240410
  Serious: Yes (Hospitalization)
  Sender: FDA-Public Use
  Company Number: US-SA-SAC20230421000349

PATIENT
  Age: 51 Year
  Sex: Female

DRUGS (6)
  1. BELUMOSUDIL MESYLATE [Suspect]
     Active Substance: BELUMOSUDIL MESYLATE
     Indication: Chronic graft versus host disease
     Dosage: 200 MG, BID
     Dates: start: 20230119
  2. INFLUENZA VIRUS VACCINE [Suspect]
     Active Substance: INFLUENZA VIRUS VACCINE
     Indication: Immunisation
     Route: 065
  3. DUPIXENT [Concomitant]
     Active Substance: DUPILUMAB
     Dosage: 600 MG, TOTAL, 1X
  4. FLUOROMETHOLONE [Concomitant]
     Active Substance: FLUOROMETHOLONE
     Dosage: UNK
  5. TEAR DROPS [Concomitant]
     Dosage: UNK
  6. RESTASIS [Concomitant]
     Active Substance: CYCLOSPORINE
     Dosage: UNK

REACTIONS (16)
  - Fall [Unknown]
  - Pain [Unknown]
  - Eye pain [Unknown]
  - Joint swelling [Unknown]
  - Eye irritation [Unknown]
  - Chest pain [Unknown]
  - Nasal discharge discolouration [Unknown]
  - Epistaxis [Unknown]
  - Cystitis [Unknown]
  - Dizziness [Unknown]
  - Dysuria [Unknown]
  - Asthenia [Unknown]
  - Nasopharyngitis [Unknown]
  - Fatigue [Unknown]
  - Headache [Unknown]
  - Inappropriate schedule of product administration [Unknown]

NARRATIVE: CASE EVENT DATE: 20230101
